FAERS Safety Report 12543454 (Version 1)
Quarter: 2016Q3

REPORT INFORMATION
  Report Type: Spontaneous
  Country: US (occurrence: US)
  Receive Date: 20160711
  Receipt Date: 20160711
  Transmission Date: 20161109
  Serious: No
  Sender: FDA-Public Use
  Company Number: US-TEVA-656333USA

PATIENT
  Sex: Female

DRUGS (1)
  1. VENLAFAXINE [Suspect]
     Active Substance: VENLAFAXINE HYDROCHLORIDE
     Indication: CARDIAC DISORDER
     Dosage: 75 MILLIGRAM DAILY;

REACTIONS (4)
  - Abdominal distension [Recovered/Resolved]
  - Eructation [Recovering/Resolving]
  - Flatulence [Recovering/Resolving]
  - Product use issue [Unknown]
